FAERS Safety Report 4982527-7 (Version None)
Quarter: 2006Q2

REPORT INFORMATION
  Report Type: 
  Country: None (occurrence: None)
  Receive Date: 20060421
  Receipt Date: 20060411
  Transmission Date: 20061013
  Serious: Yes (Other)
  Sender: FDA-Public Use
  Company Number: 2006050686

PATIENT
  Age: 58 Year
  Sex: Male

DRUGS (8)
  1. DILANTIN [Suspect]
     Indication: ILL-DEFINED DISORDER
     Dosage: 400 MG (1 D)
  2. GLIADEL [Suspect]
     Indication: GLIOMA
     Dosage: 61.6 MG (7.7 MG)
     Dates: start: 20060316
  3. DEXAMETHASONE [Concomitant]
  4. 06-BENZYLGUANINE (06-BENZYLGUANINE) [Concomitant]
  5. MULTIVITAMIN [Concomitant]
  6. TEMOZOLOMIDE (TEMOZOLOMIDE) [Concomitant]
  7. THERAPEUTIC RADIOPHARMACEUTICALS (THERAPEUTIC RADIOPHARMACEUTICALS) [Concomitant]
  8. CCNU (LOMUSTINE) [Concomitant]

REACTIONS (6)
  - ANTICONVULSANT DRUG LEVEL DECREASED [None]
  - ASTHENIA [None]
  - CONVULSION [None]
  - DRUG INTERACTION [None]
  - POSTICTAL STATE [None]
  - VISUAL ACUITY REDUCED [None]
